FAERS Safety Report 9771197 (Version 4)
Quarter: 2015Q2

REPORT INFORMATION
  Report Type: Report from Study
  Country: TW (occurrence: TW)
  Receive Date: 20131218
  Receipt Date: 20150408
  Transmission Date: 20150821
  Serious: Yes (Hospitalization)
  Sender: FDA-Public Use
  Company Number: TW-009507513-1312TWN000820

PATIENT
  Age: 66 Year
  Sex: Male
  Weight: 66 kg

DRUGS (36)
  1. PREDNISOLONE. [Suspect]
     Active Substance: PREDNISOLONE
     Indication: CHRONIC OBSTRUCTIVE PULMONARY DISEASE
     Dosage: TOTAL DAILY DOSE 30 MG, TABLET
     Route: 048
     Dates: start: 20101218, end: 20101222
  2. ZITHROMAX [Suspect]
     Active Substance: AZITHROMYCIN DIHYDRATE
     Indication: CHRONIC OBSTRUCTIVE PULMONARY DISEASE
     Dosage: TOTAL DAILY DOSE 500 MG, QD
     Route: 048
     Dates: start: 20101207, end: 20101211
  3. MAGNESIUM OXIDE. [Suspect]
     Active Substance: MAGNESIUM OXIDE
     Indication: CONSTIPATION
     Dosage: 1500 MG DAILY
     Route: 048
     Dates: start: 20101211, end: 20101219
  4. GASCON (DIMETHICONE) [Suspect]
     Active Substance: DIMETHICONE
     Indication: CONSTIPATION
     Dosage: TOTAL DAILY DOSE 160 MG
     Route: 048
     Dates: start: 20101219, end: 20101222
  5. ALPRALINE [Suspect]
     Active Substance: ALPRAZOLAM
     Indication: INSOMNIA
     Dosage: TOTAL DAILY DOSE 5MG
     Route: 048
     Dates: start: 20101213, end: 20101230
  6. MUCOSOLVAN [Concomitant]
     Active Substance: AMBROXOL\CLENBUTEROL
     Indication: CHRONIC OBSTRUCTIVE PULMONARY DISEASE
     Dosage: 180 MG DAILY
     Dates: start: 20080101
  7. TRITACE [Concomitant]
     Active Substance: RAMIPRIL
     Indication: CORONARY ARTERY DISEASE
     Dosage: 10 MG DAILY
     Dates: start: 20100122
  8. ALLOPURINOL. [Concomitant]
     Active Substance: ALLOPURINOL
     Indication: HYPERURICAEMIA
     Dosage: 100 MG DAILY
     Dates: start: 20100927
  9. SOLU-MEDROL [Suspect]
     Active Substance: METHYLPREDNISOLONE SODIUM SUCCINATE
     Indication: CHRONIC OBSTRUCTIVE PULMONARY DISEASE
     Dosage: TOTAL DAILY DOSE 120 MG
     Route: 042
     Dates: start: 20101207, end: 20121210
  10. REGROW [Concomitant]
     Indication: CHRONIC OBSTRUCTIVE PULMONARY DISEASE
     Dosage: 120 MG DAILY
     Dates: start: 20091008
  11. SOLU-MEDROL [Suspect]
     Active Substance: METHYLPREDNISOLONE SODIUM SUCCINATE
     Dosage: TOTAL DAILY DOSE 40 MG
     Route: 042
     Dates: start: 20101215, end: 20101218
  12. ANTIMONY POTASSIUM TARTRATE [Suspect]
     Active Substance: ANTIMONY POTASSIUM TARTRATE
     Indication: CHRONIC OBSTRUCTIVE PULMONARY DISEASE
     Dosage: TOTAL DAILY DOSE 9.6 MG
     Route: 048
     Dates: start: 20101209
  13. ATROVENT [Suspect]
     Active Substance: IPRATROPIUM BROMIDE
     Indication: CHRONIC OBSTRUCTIVE PULMONARY DISEASE
     Dosage: TOTAL DAILY DOSE 2000 MCG
     Route: 055
     Dates: start: 20101207, end: 20101229
  14. AUGMENTIN [Suspect]
     Active Substance: AMOXICILLIN\CLAVULANATE POTASSIUM
     Indication: UPPER RESPIRATORY TRACT INFECTION
     Dosage: 2 GRAN DAILY
     Dates: start: 20101129, end: 20101205
  15. ESOMEPRAZOLE MAGNESIUM. [Suspect]
     Active Substance: ESOMEPRAZOLE MAGNESIUM
     Indication: PROPHYLAXIS
     Dosage: TOTAL DAILY DOSE 40 MG
     Route: 048
     Dates: start: 20101222, end: 20101230
  16. AMINOPHYLLINE [Suspect]
     Active Substance: AMINOPHYLLINE
     Indication: CHRONIC OBSTRUCTIVE PULMONARY DISEASE
     Dosage: STRENGTH:250 MG/10 ML/AMP 1000 MG; TOTAL DAILY DOSE 1000 MG
     Route: 042
     Dates: start: 20101208, end: 20101208
  17. TAZOCIN [Suspect]
     Active Substance: PIPERACILLIN SODIUM\TAZOBACTAM SODIUM
     Indication: CHRONIC OBSTRUCTIVE PULMONARY DISEASE
     Dosage: TOTAL DAILY DOSE 16 GM
     Route: 042
     Dates: start: 20101211, end: 20101218
  18. PHYLLOCONTIN [Concomitant]
     Active Substance: AMINOPHYLLINE
     Indication: CHRONIC OBSTRUCTIVE PULMONARY DISEASE
     Dosage: 450 MG DAILY
     Dates: start: 20080101
  19. PREDNISOLONE. [Suspect]
     Active Substance: PREDNISOLONE
     Dosage: TOTAL DAILY DOSE 20 MG, TABLET
     Route: 048
     Dates: start: 20101223, end: 20101230
  20. SOLU-MEDROL [Suspect]
     Active Substance: METHYLPREDNISOLONE SODIUM SUCCINATE
     Dosage: TOTAL DAILY DOSE 80 MG
     Route: 042
     Dates: start: 20101211, end: 20121214
  21. VENTOLIN [Concomitant]
     Active Substance: ALBUTEROL SULFATE
     Indication: CHRONIC OBSTRUCTIVE PULMONARY DISEASE
     Dosage: 200 MICROGRAM DAILY
     Dates: start: 20090702
  22. PLENDIL [Concomitant]
     Active Substance: FELODIPINE
     Indication: HYPERTENSION
     Dosage: 10 MG DAILY
     Dates: start: 20100514
  23. GLIBUDON [Concomitant]
     Indication: DIABETES MELLITUS
     Dosage: 1000 MG DAILY
     Dates: start: 20100122
  24. SINGULAIR [Concomitant]
     Active Substance: MONTELUKAST SODIUM
     Indication: ASTHMA
     Dosage: 10 MG DAILY
     Route: 048
     Dates: start: 20090226
  25. BRICANYL [Suspect]
     Active Substance: TERBUTALINE SULFATE
     Indication: CHRONIC OBSTRUCTIVE PULMONARY DISEASE
     Dosage: TOTAL DAILY DOSE 10 MG
     Route: 055
     Dates: start: 20101207, end: 20101208
  26. GLURENORM [Concomitant]
     Indication: DIABETES MELLITUS
     Dosage: 60 MG DAILY
     Dates: start: 20090316
  27. SITAGLIPTIN PHOSPHATE [Suspect]
     Active Substance: SITAGLIPTIN PHOSPHATE
     Indication: TYPE 2 DIABETES MELLITUS
     Dosage: 100 MG, QD
     Route: 048
     Dates: start: 20100611
  28. CAMPHORATED OPIUM TINCTURE BP [Suspect]
     Active Substance: OPIUM TINCTURE
     Indication: CHRONIC OBSTRUCTIVE PULMONARY DISEASE
     Dosage: TOTAL DAILY DOSE 4.8 ML
     Route: 048
     Dates: start: 20101209
  29. GLYCYRRHIZA [Suspect]
     Active Substance: LICORICE
     Indication: CHRONIC OBSTRUCTIVE PULMONARY DISEASE
     Dosage: TOTAL DAILY DOSE 4.8 ML
     Route: 048
     Dates: start: 20101209, end: 20101230
  30. LEVOFLOXACIN. [Suspect]
     Active Substance: LEVOFLOXACIN
     Indication: CHRONIC OBSTRUCTIVE PULMONARY DISEASE
     Dosage: TOTAL DAILY DOSE 500 MG
     Route: 048
     Dates: start: 20101218, end: 20101225
  31. ASPIRIN. [Concomitant]
     Active Substance: ASPIRIN
     Indication: CORONARY ARTERY DISEASE
     Dosage: 100 MG DAILY
     Dates: start: 20100122
  32. UNASYN (SULTAMICILLIN TOSYLATE) [Suspect]
     Active Substance: SULTAMICILLIN TOSYLATE
     Indication: CHRONIC OBSTRUCTIVE PULMONARY DISEASE
     Dosage: TOTAL DAILY DOSE 4000 MG, Q6H
     Route: 042
     Dates: start: 20101207, end: 20101210
  33. PLAVIX [Concomitant]
     Active Substance: CLOPIDOGREL BISULFATE
     Indication: CORONARY ARTERY DISEASE
     Dosage: 75 MG DAILY
     Dates: start: 20100108
  34. NATRILIX [Concomitant]
     Active Substance: INDAPAMIDE
     Indication: HYPERTENSION
     Dosage: 1.5 MG DAILY
     Dates: start: 20100611
  35. LIPITOR [Concomitant]
     Active Substance: ATORVASTATIN CALCIUM
     Indication: HYPERLIPIDAEMIA
     Dosage: 10 MG DAILY
     Dates: start: 20100611
  36. PREDONINE [Concomitant]
     Active Substance: PREDNISOLONE\PREDNISOLONE ACETATE\PREDNISOLONE SODIUM SUCCINATE
     Indication: CHRONIC OBSTRUCTIVE PULMONARY DISEASE
     Dosage: 5 MG DAILY
     Dates: start: 20100630

REACTIONS (1)
  - Chronic obstructive pulmonary disease [Recovered/Resolved]

NARRATIVE: CASE EVENT DATE: 20101127
